FAERS Safety Report 5027118-7 (Version None)
Quarter: 2006Q2

REPORT INFORMATION
  Report Type: 
  Country: None (occurrence: None)
  Receive Date: 20060612
  Receipt Date: 20060602
  Transmission Date: 20061013
  Serious: Yes (Other)
  Sender: FDA-Public Use
  Company Number: HQWYE974806JUN06

PATIENT
  Age: 44 Year
  Sex: Female

DRUGS (1)
  1. PRIMATENE MIST [Suspect]
     Indication: DYSPNOEA
     Dosage: 1 INHALATION 3 TO 4 TIMES DAILY ^PLUS A LOT MORE^ INHALATION
     Route: 055
     Dates: start: 20000101

REACTIONS (1)
  - DRUG DEPENDENCE [None]
